FAERS Safety Report 6820172-9 (Version None)
Quarter: 2010Q3

REPORT INFORMATION
  Report Type: 
  Country: None (occurrence: None)
  Receive Date: 20100707
  Receipt Date: 20100701
  Transmission Date: 20110219
  Serious: Yes (Disabling)
  Sender: FDA-Public Use
  Company Number: US-MERCK-1007USA00308

PATIENT
  Age: 71 Year
  Sex: Male
  Weight: 105 kg

DRUGS (9)
  1. ZETIA [Suspect]
     Indication: HYPERLIPIDAEMIA
     Route: 048
  2. ZETIA [Suspect]
     Route: 048
     Dates: start: 20070101, end: 20070201
  3. ZETIA [Suspect]
     Indication: CORONARY ARTERY DISEASE
     Route: 048
  4. ZETIA [Suspect]
     Route: 048
     Dates: start: 20070101, end: 20070201
  5. COZAAR [Concomitant]
     Route: 048
  6. TOPROL-XL [Concomitant]
     Route: 048
  7. SYNTHROID [Concomitant]
     Route: 065
  8. SPIRIVA [Concomitant]
     Route: 065
  9. ALBUTEROL [Concomitant]
     Route: 065

REACTIONS (5)
  - ABDOMINAL PAIN [None]
  - CONSTIPATION [None]
  - DEEP VEIN THROMBOSIS [None]
  - DIARRHOEA [None]
  - PELVIC PAIN [None]
